FAERS Safety Report 7378466-7 (Version None)
Quarter: 2011Q1

REPORT INFORMATION
  Report Type: 
  Country: None (occurrence: None)
  Receive Date: 20110328
  Receipt Date: 20110315
  Transmission Date: 20110831
  Serious: Yes (Hospitalization)
  Sender: FDA-Public Use
  Company Number: JP-ELI_LILLY_AND_COMPANY-JP201101007314

PATIENT
  Age: 70 Year
  Sex: Female

DRUGS (2)
  1. FORTEO [Suspect]
     Dosage: UNK, UNK
     Route: 058
     Dates: start: 20110314
  2. FORTEO [Suspect]
     Dosage: UNK, UNK
     Route: 058
     Dates: start: 20110118, end: 20110221

REACTIONS (3)
  - FRACTURE [None]
  - FALL [None]
  - SWOLLEN TONGUE [None]
